FAERS Safety Report 9043520 (Version 1)
Quarter: 2013Q1

REPORT INFORMATION
  Report Type: Report from Study
  Country: US (occurrence: US)
  Receive Date: 20130129
  Receipt Date: 20130129
  Transmission Date: 20140127
  Serious: No
  Sender: FDA-Public Use
  Company Number: US-ABBOTT-12P-163-0912896-00

PATIENT
  Age: 33 Year
  Sex: Male

DRUGS (3)
  1. HUMIRA 40 MG/0.8 ML PEN [Suspect]
     Indication: ANKYLOSING SPONDYLITIS
     Dates: start: 20120203, end: 20120302
  2. NORCO [Concomitant]
     Indication: PAIN
     Dosage: AS REQUIRED
  3. PREDNISONE [Concomitant]
     Indication: ANKYLOSING SPONDYLITIS
     Dosage: AS REQUIRED (HASN^T TAKEN SINCE HE STARTED HUMIRA PEN

REACTIONS (4)
  - Malaise [Recovering/Resolving]
  - Pyrexia [Recovering/Resolving]
  - Oropharyngeal pain [Recovering/Resolving]
  - Chest pain [Recovering/Resolving]
